FAERS Safety Report 13654907 (Version 1)
Quarter: 2017Q2

REPORT INFORMATION
  Report Type: Spontaneous
  Country: US (occurrence: US)
  Receive Date: 20170615
  Receipt Date: 20170615
  Transmission Date: 20170830
  Serious: No
  Sender: FDA-Public Use
  Company Number: US-AUROBINDO-AUR-APU-2016-09759

PATIENT
  Sex: Female

DRUGS (3)
  1. TYLENOL [Concomitant]
     Active Substance: ACETAMINOPHEN
     Indication: PRODUCT USED FOR UNKNOWN INDICATION
     Route: 065
  2. CEFADROXIL FOR ORAL SUSPENSION USP 500 MG/5 ML [Suspect]
     Active Substance: CEFADROXIL
     Indication: PHARYNGITIS
     Dosage: UNK, TWO TIMES A DAY
     Route: 065
     Dates: start: 20160718
  3. MOTRIN [Concomitant]
     Active Substance: IBUPROFEN
     Indication: PRODUCT USED FOR UNKNOWN INDICATION
     Route: 065

REACTIONS (2)
  - Incorrect product storage [None]
  - Drug administration error [Unknown]
